FAERS Safety Report 17505247 (Version 4)
Quarter: 2020Q2

REPORT INFORMATION
  Report Type: Report from Study
  Country: GR (occurrence: GR)
  Receive Date: 20200305
  Receipt Date: 20200512
  Transmission Date: 20200713
  Serious: Yes (Disabling)
  Sender: FDA-Public Use
  Company Number: GR-CELGENEUS-GRC-20200300264

PATIENT
  Age: 52 Year
  Sex: Male
  Weight: 82 kg

DRUGS (12)
  1. FOLIC ACID. [Concomitant]
     Active Substance: FOLIC ACID
     Indication: ANAEMIA
     Dosage: 5 MILLIGRAM
     Route: 048
  2. DIPYRIDAMOLE. [Concomitant]
     Active Substance: DIPYRIDAMOLE
     Indication: MESENTERIC VEIN THROMBOSIS
     Dosage: 150 MILLIGRAM
     Route: 048
     Dates: start: 19960415
  3. ALLOPURINOL. [Concomitant]
     Active Substance: ALLOPURINOL
     Indication: BLOOD URIC ACID DECREASED
     Dosage: 100 MILLIGRAM
     Route: 048
     Dates: start: 20161005
  4. DEFERASIROX-FCT [Concomitant]
     Indication: IRON OVERLOAD
     Dosage: 1800 MILLIGRAM
     Route: 048
     Dates: start: 20170926
  5. LUSPATERCEPT. [Suspect]
     Active Substance: LUSPATERCEPT
     Indication: THALASSAEMIA BETA
     Route: 058
     Dates: start: 20191227
  6. VITAMIN E [Concomitant]
     Active Substance: .ALPHA.-TOCOPHEROL
     Indication: ANTIOXIDANT THERAPY
     Dosage: 400 IU (INTERNATIONAL UNIT)
     Route: 048
     Dates: start: 20190419
  7. ACETYLSALICYLIC ACID [Concomitant]
     Active Substance: ASPIRIN
     Indication: PROPHYLAXIS
  8. OMEGA-3 FATTY ACIDS [Concomitant]
     Active Substance: OMEGA-3 FATTY ACIDS
     Indication: HYPERTRIGLYCERIDAEMIA
     Dosage: 300 MILLIGRAM
     Route: 048
  9. DIPYRIDAMOLE. [Concomitant]
     Active Substance: DIPYRIDAMOLE
     Indication: PROPHYLAXIS
  10. LUSPATERCEPT. [Suspect]
     Active Substance: LUSPATERCEPT
     Route: 058
     Dates: start: 20200204
  11. ACETYLSALICYLIC ACID [Concomitant]
     Active Substance: ASPIRIN
     Indication: MESENTERIC VEIN THROMBOSIS
     Dosage: 200 MILLIGRAM
     Route: 048
     Dates: start: 20160616
  12. DESFEROXAMINE [Concomitant]
     Indication: IRON OVERLOAD
     Route: 058
     Dates: start: 201604

REACTIONS (1)
  - Pulmonary hypertension [Not Recovered/Not Resolved]

NARRATIVE: CASE EVENT DATE: 202002
